FAERS Safety Report 4576784-9 (Version None)
Quarter: 2005Q1

REPORT INFORMATION
  Report Type: 
  Country: None (occurrence: None)
  Receive Date: 20050207
  Receipt Date: 20050124
  Transmission Date: 20050727
  Serious: Yes (Hospitalization, Other)
  Sender: FDA-Public Use
  Company Number: 2005019477

PATIENT
  Age: 41 Year
  Sex: Male
  Weight: 83.9154 kg

DRUGS (4)
  1. ZOLOFT [Suspect]
     Indication: DEPRESSION
     Dosage: 200 MG (1D) , ORAL
     Route: 048
     Dates: start: 20040601, end: 20040902
  2. PROPRANOLOL [Suspect]
     Indication: ILL-DEFINED DISORDER
     Dates: end: 20040902
  3. CLONAZEPAM [Suspect]
     Indication: ILL-DEFINED DISORDER
     Dates: end: 20040902
  4. ZOLPIDEM TARTRATE [Suspect]
     Indication: ILL-DEFINED DISORDER
     Dates: end: 20040902

REACTIONS (6)
  - COGNITIVE DISORDER [None]
  - GUN SHOT WOUND [None]
  - MAJOR DEPRESSION [None]
  - REFUSAL OF TREATMENT BY PATIENT [None]
  - SOMATOFORM DISORDER [None]
  - SUICIDE ATTEMPT [None]
